FAERS Safety Report 8391479-1 (Version None)
Quarter: 2012Q2

REPORT INFORMATION
  Report Type: 
  Country: None (occurrence: None)
  Receive Date: 20120529
  Receipt Date: 20120522
  Transmission Date: 20120825
  Serious: Yes (Hospitalization, Other)
  Sender: FDA-Public Use
  Company Number: US-BAYER-2012-051906

PATIENT
  Age: 47 Year
  Sex: Female
  Weight: 76.644 kg

DRUGS (15)
  1. DROSPIRENONE AND ETHINYL ESTRADIOL [Suspect]
  2. PROAIR HFA [Concomitant]
     Dosage: 90 MCG, UNK
     Dates: start: 20111017
  3. XANAX [Concomitant]
  4. ALPRAZOLAM [Concomitant]
     Dosage: 0.5 MG/AS NEEDED
     Dates: start: 20111026
  5. HYDROCHLOROTHIAZIDE [Concomitant]
     Dosage: 25 MG/ HALF DAILY
     Dates: start: 20111026
  6. HYDROCODONE BITARTRATE + ACETAMINOPHEN [Concomitant]
     Dosage: 5/500
     Dates: start: 20111117
  7. YASMIN [Suspect]
     Indication: CONTRACEPTION
  8. MELOXICAM [Concomitant]
     Dosage: 15 MG, UNK
     Dates: start: 20111118
  9. LEVAQUIN [Concomitant]
     Indication: URINARY TRACT INFECTION
  10. PROZAC [Concomitant]
     Dosage: 10 MG, DAILY
     Dates: start: 20110908
  11. LORTAB [Concomitant]
  12. OMEPRAZOLE [Concomitant]
     Dosage: 25 MG, DAILY
     Dates: start: 20111026
  13. MOBIC [Concomitant]
  14. YAZ [Suspect]
  15. ALBUTEROL [Concomitant]

REACTIONS (3)
  - THROMBOPHLEBITIS SUPERFICIAL [None]
  - PULMONARY EMBOLISM [None]
  - DEEP VEIN THROMBOSIS [None]
